FAERS Safety Report 5326813-X (Version None)
Quarter: 2007Q2

REPORT INFORMATION
  Report Type: 
  Country: None (occurrence: None)
  Receive Date: 20070516
  Receipt Date: 20070510
  Transmission Date: 20071010
  Serious: Yes (Hospitalization)
  Sender: FDA-Public Use
  Company Number: US-PFIZER INC-2007038030

PATIENT
  Sex: Female
  Weight: 128.8 kg

DRUGS (11)
  1. VISTARIL CAP [Interacting]
  2. OXYMORPHONE [Suspect]
     Dates: end: 20070401
  3. SKELAXIN [Suspect]
  4. TRAZODONE HCL [Suspect]
  5. AMBIEN [Concomitant]
  6. QUININE SULFATE [Concomitant]
  7. SINEMET [Concomitant]
  8. ALL OTHER THERAPEUTIC PRODUCTS [Concomitant]
  9. AMARYL [Concomitant]
  10. INSULIN [Concomitant]
  11. ULTRAM [Concomitant]

REACTIONS (4)
  - CONFUSIONAL STATE [None]
  - DRUG INTERACTION [None]
  - NARCOTIC INTOXICATION [None]
  - TROPONIN INCREASED [None]
